FAERS Safety Report 20866708 (Version 1)
Quarter: 2022Q2

REPORT INFORMATION
  Report Type: Spontaneous
  Country: US (occurrence: None)
  Receive Date: 20220523
  Receipt Date: 20220523
  Transmission Date: 20220721
  Serious: No
  Sender: FDA-Public Use
  Company Number: None

PATIENT
  Sex: Female

DRUGS (2)
  1. DEVICE [Suspect]
     Active Substance: DEVICE
     Indication: Pulmonary arterial hypertension
     Dosage: OTHER FREQUENCY: CONTINUOUS?DOSE OR AMOUNT: VELETRI 10NG/KG/MIN?
     Route: 042
     Dates: start: 202203
  2. VELETRI [Suspect]
     Active Substance: EPOPROSTENOL
     Dosage: CONTINOUS IV
     Dates: start: 202203

REACTIONS (3)
  - Anxiety [None]
  - Device leakage [None]
  - Hyperacusis [None]
